FAERS Safety Report 23692734 (Version 2)
Quarter: 2024Q2

REPORT INFORMATION
  Report Type: Spontaneous
  Country: US (occurrence: US)
  Receive Date: 20240401
  Receipt Date: 20240606
  Transmission Date: 20240715
  Serious: Yes (Hospitalization)
  Sender: FDA-Public Use
  Company Number: US-MYLANLABS-2024M1028931

PATIENT
  Age: 40 Year
  Sex: Male

DRUGS (11)
  1. NITROGLYCERIN [Suspect]
     Active Substance: NITROGLYCERIN
     Indication: Angina pectoris
     Dosage: 15 MICROGRAM, QMINUTE, CONTINUOUS
     Route: 042
     Dates: start: 20230926, end: 20230926
  2. HEPARIN [Concomitant]
     Active Substance: HEPARIN SODIUM
     Indication: Acute myocardial infarction
     Dosage: UNK, INFUSION
     Route: 065
     Dates: start: 2023, end: 2023
  3. TIROFIBAN [Concomitant]
     Active Substance: TIROFIBAN
     Indication: Antiplatelet therapy
     Dosage: UNK, INFUSION
     Route: 065
     Dates: start: 2023, end: 2023
  4. ASPIRIN [Concomitant]
     Active Substance: ASPIRIN
     Indication: Antiplatelet therapy
     Dosage: UNK
     Route: 065
     Dates: start: 2023
  5. TICAGRELOR [Concomitant]
     Active Substance: TICAGRELOR
     Indication: Antiplatelet therapy
     Dosage: UNK
     Route: 065
     Dates: start: 2023
  6. ARGATROBAN [Concomitant]
     Active Substance: ARGATROBAN
     Indication: Antiplatelet therapy
     Dosage: UNK
     Route: 065
     Dates: start: 2023, end: 2023
  7. BIVALIRUDIN [Concomitant]
     Active Substance: BIVALIRUDIN
     Indication: Antiplatelet therapy
     Dosage: UNK, INITIALLY DISCONTINUED
     Route: 065
     Dates: start: 2023, end: 2023
  8. BIVALIRUDIN [Concomitant]
     Active Substance: BIVALIRUDIN
     Dosage: UNK, RESUMED
     Route: 065
     Dates: start: 2023, end: 2023
  9. EPTIFIBATIDE [Concomitant]
     Active Substance: EPTIFIBATIDE
     Indication: Antiplatelet therapy
     Dosage: UNK, INITIALLY DISCONTINUED
     Route: 065
     Dates: start: 2023, end: 2023
  10. EPTIFIBATIDE [Concomitant]
     Active Substance: EPTIFIBATIDE
     Dosage: UNK, RESUMED
     Route: 065
     Dates: start: 2023, end: 2023
  11. WARFARIN [Concomitant]
     Active Substance: WARFARIN
     Indication: Antiplatelet therapy
     Dosage: UNK
     Route: 065
     Dates: start: 2023

REACTIONS (1)
  - Drug ineffective [Unknown]
